FAERS Safety Report 8802616 (Version 2)
Quarter: 2012Q4

REPORT INFORMATION
  Report Type: 
  Country: DE (occurrence: DE)
  Receive Date: 20120921
  Receipt Date: 20121121
  Transmission Date: 20130627
  Serious: Yes (Hospitalization)
  Sender: FDA-Public Use
  Company Number: DE-ELI_LILLY_AND_COMPANY-DE201209002914

PATIENT
  Age: 61 Year
  Sex: Male

DRUGS (9)
  1. BYDUREON [Suspect]
     Dosage: 2 mg, weekly (1/W)
     Route: 058
     Dates: start: 20111006, end: 20120806
  2. METFORMIN [Concomitant]
     Dosage: 850 mg, tid
  3. DIGITOXIN [Concomitant]
  4. BISOPROLOL [Concomitant]
     Dosage: 5 mg, UNK
  5. SIMVASTATIN [Concomitant]
     Dosage: 20 mg, UNK
  6. MELPERON [Concomitant]
     Dosage: 50 mg, UNK
  7. KARVEZIDE [Concomitant]
     Dosage: UNK, qd
  8. TORASEMID [Concomitant]
     Dosage: 10 mg, UNK
  9. ALLOBETA [Concomitant]
     Dosage: 300 mg, UNK

REACTIONS (4)
  - Blood glucose increased [Recovered/Resolved]
  - Injection site nodule [Recovered/Resolved]
  - Injection site bruising [Recovered/Resolved]
  - Injection site induration [Recovered/Resolved]
